FAERS Safety Report 5265291-6 (Version None)
Quarter: 2007Q1

REPORT INFORMATION
  Report Type: 
  Country: None (occurrence: None)
  Receive Date: 20061214
  Receipt Date: 20051013
  Transmission Date: 20070707
  Serious: Yes (Other)
  Sender: FDA-Public Use
  Company Number: 2005UW15445

PATIENT
  Age: 6 Year
  Sex: Female

DRUGS (2)
  1. PULMICORT RESPULES [Suspect]
     Indication: BRONCHIAL HYPERREACTIVITY
     Dosage: 0.25 MG IH
     Route: 055
     Dates: start: 20051012
  2. ALBUTEROL [Suspect]

REACTIONS (2)
  - DRUG ADMINISTRATION ERROR [None]
  - VOMITING [None]
